FAERS Safety Report 9828482 (Version 3)
Quarter: 2014Q3

REPORT INFORMATION
  Report Type: Report from Study
  Country: JP (occurrence: JP)
  Receive Date: 20140117
  Receipt Date: 20140716
  Transmission Date: 20150326
  Serious: Yes (Hospitalization, Other)
  Sender: FDA-Public Use
  Company Number: JP-009507513-1309JPN006413

PATIENT
  Age: 64 Year
  Sex: Male
  Weight: 66 kg

DRUGS (6)
  1. REBETOL [Suspect]
     Active Substance: RIBAVIRIN
     Indication: HEPATIC CIRRHOSIS
     Dosage: 800 MG, QD
     Route: 048
     Dates: start: 20130205, end: 20130506
  2. GLACTIV [Concomitant]
     Active Substance: SITAGLIPTIN
     Indication: DIABETES MELLITUS
     Dosage: 50 MG, QD; FORMULATION POR
     Route: 048
     Dates: start: 20130312
  3. PROTECADIN [Concomitant]
     Active Substance: LAFUTIDINE
     Indication: GASTRIC ULCER
     Dosage: 10 MG, BID; FORMULATION POR
     Route: 048
     Dates: start: 20130305, end: 20131217
  4. PEGINTRON [Suspect]
     Active Substance: PEGINTERFERON ALFA-2B
     Indication: HEPATIC CIRRHOSIS
     Dosage: 70 MICROGRAM, QW
     Route: 058
     Dates: start: 20130205, end: 20130212
  5. PEGINTRON [Suspect]
     Active Substance: PEGINTERFERON ALFA-2B
     Dosage: 70 MCG, QW
     Route: 058
     Dates: start: 20130305, end: 201305
  6. PEGINTRON [Suspect]
     Active Substance: PEGINTERFERON ALFA-2B
     Dosage: 35 MICROGRAM, QW
     Route: 058
     Dates: start: 20130219, end: 20130226

REACTIONS (3)
  - Anaemia [Recovered/Resolved]
  - Platelet count decreased [Recovered/Resolved]
  - Urinary tract infection [Recovering/Resolving]

NARRATIVE: CASE EVENT DATE: 20130218
